FAERS Safety Report 8380555-5 (Version None)
Quarter: 2012Q1

REPORT INFORMATION
  Report Type: 
  Country: None (occurrence: None)
  Receive Date: 20120323
  Receipt Date: 20110714
  Transmission Date: 20120608
  Serious: Yes (Other)
  Sender: FDA-Public Use
  Company Number: 163-21880-11040535

PATIENT
  Age: 62 Year
  Sex: Male
  Weight: 83.4619 kg

DRUGS (7)
  1. ACYCLOVIR [Concomitant]
  2. LISINOPRIL [Concomitant]
  3. VELCADE [Concomitant]
  4. ASPIRIN [Concomitant]
  5. VITAMIN D [Concomitant]
  6. REVLIMID [Suspect]
     Indication: MULTIPLE MYELOMA
     Dosage: 25 MG, DAILY, 21/28 DAYS, PO
     Route: 048
     Dates: start: 20081201, end: 20110309
  7. DEXAMETHASONE [Concomitant]

REACTIONS (1)
  - VENOUS THROMBOSIS LIMB [None]
